FAERS Safety Report 7804990-6 (Version None)
Quarter: 2011Q4

REPORT INFORMATION
  Report Type: 
  Country: None (occurrence: None)
  Receive Date: 20111010
  Receipt Date: 20111005
  Transmission Date: 20120403
  Serious: Yes (Other)
  Sender: FDA-Public Use
  Company Number: US-GLAXOSMITHKLINE-A0744061A

PATIENT
  Age: 53 Year
  Sex: Female
  Weight: 118.2 kg

DRUGS (4)
  1. CENESTIN [Concomitant]
     Indication: HORMONE REPLACEMENT THERAPY
  2. AVANDIA [Suspect]
     Indication: TYPE 2 DIABETES MELLITUS
     Dosage: 2MG TWICE PER DAY
     Route: 048
     Dates: start: 20050601, end: 20061201
  3. AVANDAMET [Suspect]
     Indication: TYPE 2 DIABETES MELLITUS
     Route: 048
     Dates: end: 20050401
  4. XANAX [Concomitant]
     Indication: ANXIETY

REACTIONS (2)
  - PULMONARY HYPERTENSION [None]
  - MITRAL VALVE INCOMPETENCE [None]
